FAERS Safety Report 16690941 (Version 1)
Quarter: 2019Q3

REPORT INFORMATION
  Report Type: Spontaneous
  Country: US (occurrence: US)
  Receive Date: 20190812
  Receipt Date: 20190812
  Transmission Date: 20191004
  Serious: No
  Sender: FDA-Public Use
  Company Number: US-AMGEN-USASP2019123617

PATIENT
  Age: 33 Year
  Sex: Female

DRUGS (7)
  1. AIMOVIG [Suspect]
     Active Substance: ERENUMAB-AOOE
     Indication: MIGRAINE WITHOUT AURA
     Dosage: 140 MILLIGRAM, QMO
     Route: 058
     Dates: start: 2018
  2. MEDROXYPROGESTERON ACETATE [Concomitant]
     Active Substance: MEDROXYPROGESTERONE ACETATE
  3. SUMATRIPTAN. [Concomitant]
     Active Substance: SUMATRIPTAN
     Dosage: 6 MILLIGRAM, AS NECESSARY
     Route: 058
  4. ONDANSETRON [Concomitant]
     Active Substance: ONDANSETRON
     Dosage: 8 MILLIGRAM, TID PRN
  5. RIZATRIPTAN. [Concomitant]
     Active Substance: RIZATRIPTAN
     Dosage: 10 MILLIGRAM, AS NECESSARY
     Route: 058
  6. BACLOFEN. [Concomitant]
     Active Substance: BACLOFEN
     Indication: HEADACHE
     Dosage: 10 MILLIGRAM, TID PRN
  7. BUSPIRONE [Concomitant]
     Active Substance: BUSPIRONE HYDROCHLORIDE
     Dosage: 15 MILLIGRAM, BID

REACTIONS (1)
  - Raynaud^s phenomenon [Recovered/Resolved]

NARRATIVE: CASE EVENT DATE: 201811
